FAERS Safety Report 7802674-1 (Version None)
Quarter: 2011Q4

REPORT INFORMATION
  Report Type: 
  Country: None (occurrence: None)
  Receive Date: 20111007
  Receipt Date: 20110927
  Transmission Date: 20120403
  Serious: Yes (Other)
  Sender: FDA-Public Use
  Company Number: PHHY2011US78670

PATIENT
  Age: 66 Year
  Sex: Female

DRUGS (5)
  1. CYCLOSPORINE [Suspect]
     Indication: RENAL TRANSPLANT
     Dosage: UNK UKN, UNK
  2. PREDNISONE [Concomitant]
  3. AZATHIOPRINE [Interacting]
     Dosage: UNK UKN, UNK
  4. FILGRASTIM [Concomitant]
  5. FEBUXOSTAT [Interacting]
     Dosage: 40 MG, DAILY

REACTIONS (17)
  - NEUTROPHIL COUNT DECREASED [None]
  - NAUSEA [None]
  - DIARRHOEA [None]
  - WHITE BLOOD CELL COUNT DECREASED [None]
  - HAEMOGLOBIN DECREASED [None]
  - BLOOD CREATININE INCREASED [None]
  - PLATELET COUNT DECREASED [None]
  - EPSTEIN-BARR VIRUS INFECTION [None]
  - DRUG INTERACTION [None]
  - BLOOD BILIRUBIN INCREASED [None]
  - FATIGUE [None]
  - GOUT [None]
  - VOMITING [None]
  - WEIGHT DECREASED [None]
  - MALAISE [None]
  - PANCYTOPENIA [None]
  - INFLUENZA [None]
